FAERS Safety Report 13299682 (Version 2)
Quarter: 2017Q2

REPORT INFORMATION
  Report Type: Spontaneous
  Country: PT (occurrence: PT)
  Receive Date: 20170306
  Receipt Date: 20170530
  Transmission Date: 20170830
  Serious: Yes (Life-Threatening)
  Sender: FDA-Public Use
  Company Number: PT-MYLANLABS-2017M1014331

PATIENT

DRUGS (10)
  1. TRANXENE T-TAB [Concomitant]
     Active Substance: CLORAZEPATE DIPOTASSIUM
     Indication: ANXIETY
     Route: 048
     Dates: start: 2010
  2. CARBIDOPA AND LEVODOPA [Concomitant]
     Active Substance: CARBIDOPA\LEVODOPA
     Indication: PARKINSON^S DISEASE
     Route: 048
     Dates: start: 2010
  3. LANOXIN MD [Concomitant]
     Indication: ARRHYTHMIA
     Route: 048
     Dates: start: 2005
  4. LEPONEX [Suspect]
     Active Substance: CLOZAPINE
     Indication: HALLUCINATION
     Dosage: 12.5 MG, QD
     Route: 048
     Dates: start: 2012
  5. SINEMET [Interacting]
     Active Substance: CARBIDOPA\LEVODOPA
     Dosage: UNK
     Route: 048
  6. LEPONEX [Suspect]
     Active Substance: CLOZAPINE
     Dosage: 6.25 MG, QD
     Route: 048
  7. SINEMET [Interacting]
     Active Substance: CARBIDOPA\LEVODOPA
     Dosage: 4 DF, QD
     Route: 048
  8. LEPONEX [Suspect]
     Active Substance: CLOZAPINE
     Dosage: UNK
     Route: 048
  9. SINEMET [Interacting]
     Active Substance: CARBIDOPA\LEVODOPA
     Indication: PARKINSON^S DISEASE
     Dosage: 6 DF, QD
     Route: 048
     Dates: start: 2005
  10. TROMALYT [Concomitant]
     Active Substance: ASPIRIN
     Indication: CEREBROVASCULAR ACCIDENT PROPHYLAXIS
     Route: 048
     Dates: start: 2008

REACTIONS (3)
  - Loss of consciousness [Recovered/Resolved]
  - Orthostatic hypotension [Recovered/Resolved]
  - Syncope [Recovered/Resolved]

NARRATIVE: CASE EVENT DATE: 201504
